FAERS Safety Report 5028809-4 (Version None)
Quarter: 2006Q2

REPORT INFORMATION
  Report Type: 
  Country: None (occurrence: None)
  Receive Date: 20060501
  Receipt Date: 20060315
  Transmission Date: 20061013
  Serious: No
  Sender: FDA-Public Use
  Company Number: 200612662US

PATIENT
  Age: 67 Year
  Sex: Female

DRUGS (4)
  1. KETEK [Suspect]
     Indication: BRONCHITIS
     Dosage: 800 MG QD PO
     Route: 048
     Dates: start: 20051230, end: 20051231
  2. MONTELUKAST SODIUM [Concomitant]
  3. FLUTICASONE PROPIONATE [Concomitant]
  4. SALMETEROL XINAFOATE (ADVAIR) [Concomitant]

REACTIONS (10)
  - ARTHRALGIA [None]
  - ASTHENIA [None]
  - BACK PAIN [None]
  - DYSSTASIA [None]
  - DYSURIA [None]
  - FEELING HOT [None]
  - MYALGIA [None]
  - NERVOUSNESS [None]
  - POLLAKIURIA [None]
  - SLEEP DISORDER [None]
